FAERS Safety Report 5647008-6 (Version None)
Quarter: 2008Q1

REPORT INFORMATION
  Report Type: 
  Country: None (occurrence: None)
  Receive Date: 20080303
  Receipt Date: 20080220
  Transmission Date: 20080703
  Serious: Yes (Other)
  Sender: FDA-Public Use
  Company Number: B0509807A

PATIENT
  Age: 28 Year
  Sex: Male

DRUGS (3)
  1. IMIJECT [Suspect]
     Indication: CLUSTER HEADACHE
     Route: 058
  2. ISOPTIN [Concomitant]
     Indication: CLUSTER HEADACHE
     Dosage: 480MG PER DAY
     Route: 048
  3. EFFEXOR [Concomitant]
     Indication: CLUSTER HEADACHE
     Route: 065

REACTIONS (2)
  - DRUG ABUSE [None]
  - DRUG DEPENDENCE [None]
